FAERS Safety Report 23168222 (Version 1)
Quarter: 2023Q4

REPORT INFORMATION
  Report Type: Spontaneous
  Country: PT (occurrence: PT)
  Receive Date: 20231109
  Receipt Date: 20231109
  Transmission Date: 20240110
  Serious: Yes (Other)
  Sender: FDA-Public Use
  Company Number: PT-AMGEN-PRTSP2023198194

PATIENT
  Age: 37 Year
  Sex: Female

DRUGS (1)
  1. AIMOVIG [Suspect]
     Active Substance: ERENUMAB-AOOE
     Indication: Migraine without aura
     Dosage: 70 MG, QMO
     Route: 058
     Dates: start: 20230505

REACTIONS (2)
  - Hypotension [Recovered/Resolved]
  - Administration site rash [Recovering/Resolving]

NARRATIVE: CASE EVENT DATE: 20230922
